FAERS Safety Report 12537389 (Version 1)
Quarter: 2016Q3

REPORT INFORMATION
  Report Type: Spontaneous
  Country: DE (occurrence: DE)
  Receive Date: 20160707
  Receipt Date: 20160707
  Transmission Date: 20161109
  Serious: Yes (Other)
  Sender: FDA-Public Use
  Company Number: DE-JNJFOC-20160701868

PATIENT
  Age: 17 Year
  Sex: Female

DRUGS (1)
  1. XARELTO [Suspect]
     Active Substance: RIVAROXABAN
     Indication: EMBOLISM VENOUS
     Route: 048

REACTIONS (4)
  - Intentional product misuse [Unknown]
  - Vomiting [Unknown]
  - Deep vein thrombosis [Unknown]
  - Off label use [Unknown]
